FAERS Safety Report 12937846 (Version 1)
Quarter: 2016Q4

REPORT INFORMATION
  Report Type: Spontaneous
  Country: CN (occurrence: CN)
  Receive Date: 20161114
  Receipt Date: 20161114
  Transmission Date: 20170207
  Serious: Yes (Other)
  Sender: FDA-Public Use
  Company Number: CN-JNJFOC-20161107728

PATIENT

DRUGS (12)
  1. SPORANOX [Suspect]
     Active Substance: ITRACONAZOLE
     Indication: LUNG DISORDER
     Dosage: ON 3-14 DAYS
     Route: 065
  2. CEFMINOX [Concomitant]
     Active Substance: CEFMINOX SODIUM
     Indication: PRODUCT USED FOR UNKNOWN INDICATION
     Route: 065
  3. MOXIFLOXACIN. [Concomitant]
     Active Substance: MOXIFLOXACIN
     Indication: PRODUCT USED FOR UNKNOWN INDICATION
     Route: 065
  4. CEFOPERAZONE [Concomitant]
     Active Substance: CEFOPERAZONE
     Indication: PRODUCT USED FOR UNKNOWN INDICATION
     Route: 065
  5. TEICOPLANIN [Concomitant]
     Active Substance: TEICOPLANIN
     Indication: PRODUCT USED FOR UNKNOWN INDICATION
     Route: 065
  6. SPORANOX [Suspect]
     Active Substance: ITRACONAZOLE
     Indication: LUNG DISORDER
     Dosage: CAPSULES AT A DOSE OF 400 MG/D FOR 2~4 WEEKS
     Route: 048
  7. LEVOFLOXACIN. [Concomitant]
     Active Substance: LEVOFLOXACIN
     Indication: PRODUCT USED FOR UNKNOWN INDICATION
     Route: 065
  8. CEFEPIME [Concomitant]
     Active Substance: CEFEPIME HYDROCHLORIDE
     Indication: PRODUCT USED FOR UNKNOWN INDICATION
     Route: 065
  9. IMIPENEM [Concomitant]
     Active Substance: IMIPENEM
     Indication: PRODUCT USED FOR UNKNOWN INDICATION
     Route: 065
  10. SPORANOX [Suspect]
     Active Substance: ITRACONAZOLE
     Indication: LUNG DISORDER
     Dosage: ON 1-2 DAY
     Route: 065
  11. SULBACTAM [Concomitant]
     Active Substance: SULBACTAM
     Indication: PRODUCT USED FOR UNKNOWN INDICATION
     Route: 065
  12. CEFODIZIME [Concomitant]
     Active Substance: CEFODIZIME SODIUM
     Indication: PRODUCT USED FOR UNKNOWN INDICATION
     Route: 065

REACTIONS (7)
  - Decreased appetite [Unknown]
  - Hepatic function abnormal [Recovered/Resolved]
  - Gastrointestinal disorder [Recovered/Resolved]
  - Vomiting [Recovered/Resolved]
  - Transaminases increased [Recovering/Resolving]
  - Nausea [Recovered/Resolved]
  - Multiple organ dysfunction syndrome [Unknown]
